FAERS Safety Report 6169525-5 (Version None)
Quarter: 2009Q2

REPORT INFORMATION
  Report Type: 
  Country: None (occurrence: None)
  Receive Date: 20090428
  Receipt Date: 20090421
  Transmission Date: 20091009
  Serious: Yes (Hospitalization)
  Sender: FDA-Public Use
  Company Number: JP-JNJFOC-20090103259

PATIENT
  Sex: Male

DRUGS (8)
  1. CRAVIT [Suspect]
     Indication: INFECTIVE SPONDYLITIS
     Route: 048
  2. BASEN [Suspect]
     Indication: DIABETES MELLITUS
     Route: 048
  3. BAKTAR [Suspect]
     Indication: SPONDYLITIS
     Dosage: 1 DF, 2 IN 1 DAY
     Route: 048
  4. AMLODIPINE [Concomitant]
     Indication: HYPERTENSION
     Route: 048
  5. ANPLAG [Concomitant]
     Route: 048
  6. HYPEN [Concomitant]
     Indication: SPONDYLITIS
     Route: 048
  7. SELBEX [Concomitant]
     Indication: GASTRITIS
     Route: 048
  8. AMOBAN [Concomitant]
     Indication: INSOMNIA
     Route: 048

REACTIONS (2)
  - DEPRESSED LEVEL OF CONSCIOUSNESS [None]
  - HYPOGLYCAEMIA [None]
